FAERS Safety Report 9571113 (Version 2)
Quarter: 2013Q4

REPORT INFORMATION
  Report Type: Spontaneous
  Country: US (occurrence: US)
  Receive Date: 20131001
  Receipt Date: 20131112
  Transmission Date: 20140711
  Serious: Yes (Hospitalization)
  Sender: FDA-Public Use
  Company Number: US-JNJFOC-20130914134

PATIENT
  Sex: Female
  Weight: 92.53 kg

DRUGS (21)
  1. REMICADE [Suspect]
     Indication: RHEUMATOID ARTHRITIS
     Route: 042
     Dates: start: 20130710
  2. REMICADE [Suspect]
     Indication: RHEUMATOID ARTHRITIS
     Route: 042
     Dates: start: 20130604
  3. REMICADE [Suspect]
     Indication: RHEUMATOID ARTHRITIS
     Route: 042
     Dates: start: 20130506
  4. REMICADE [Suspect]
     Indication: RHEUMATOID ARTHRITIS
     Route: 042
     Dates: start: 20130422
  5. REMICADE [Suspect]
     Indication: RHEUMATOID ARTHRITIS
     Route: 042
     Dates: start: 20130816, end: 20130816
  6. ALBUTEROL [Concomitant]
     Dosage: 1-2 PUFF PEN
     Route: 065
  7. AMLODIPINE [Concomitant]
     Route: 065
  8. BUSPIRONE [Concomitant]
     Route: 065
  9. CALCIUM [Concomitant]
     Route: 065
  10. CONCERTA [Concomitant]
     Route: 065
  11. FOLIC ACID [Concomitant]
     Route: 065
  12. LISINOPRIL [Concomitant]
     Route: 065
  13. MELATONIN [Concomitant]
     Route: 065
  14. METHOTREXATE [Concomitant]
     Dosage: 1 CC SUB
     Route: 058
  15. MIRALAX [Concomitant]
     Dosage: 1/3 CUP
     Route: 065
  16. NABUMETONE [Concomitant]
     Route: 065
  17. OXYCODONE [Concomitant]
     Dosage: THEN 1 EXTRA PRN
     Route: 065
  18. PANTOPRAZOLE [Concomitant]
     Route: 065
  19. PREDNISONE [Concomitant]
     Dosage: VARIED DOSING
     Route: 065
  20. MARIJUANA [Concomitant]
     Indication: ARTHRITIS
     Route: 065
  21. VENLAFAXINE [Concomitant]
     Route: 065

REACTIONS (2)
  - Meningitis cryptococcal [Unknown]
  - Drug effect decreased [Unknown]
